FAERS Safety Report 8814876 (Version 1)
Quarter: 2012Q4

REPORT INFORMATION
  Report Type: 
  Country: US (occurrence: US)
  Receive Date: 20120928
  Receipt Date: 20120928
  Transmission Date: 20130627
  Serious: No
  Sender: FDA-Public Use
  Company Number: US-MUTUAL PHARMACEUTICAL COMPANY, INC.-QLQN20110005

PATIENT
  Sex: Female
  Weight: 76.27 kg

DRUGS (13)
  1. QUALAQUIN [Suspect]
     Indication: CRAMP IN HAND
     Route: 048
  2. QUALAQUIN [Suspect]
     Indication: FOOT CRAMPS
  3. ASPIRIN [Concomitant]
     Indication: CARDIAC DISORDER
     Route: 048
  4. POTASSIUM CHLORIDE [Concomitant]
     Indication: HYPERTENSION
     Route: 048
  5. METOPROLOL [Concomitant]
     Indication: HYPERTENSION
     Route: 048
  6. BENAZEPRIL [Concomitant]
     Indication: HYPERTENSION
     Route: 048
  7. AMLODIPINE [Concomitant]
     Indication: HYPERTENSION
     Route: 048
  8. CELEBREX [Concomitant]
     Indication: ARTHRITIS
     Route: 048
  9. LIPITOR [Concomitant]
     Indication: HIGH CHOLESTEROL
     Route: 048
  10. NEXIUM [Concomitant]
     Indication: GASTROINTESTINAL DISORDER
     Route: 048
  11. VITAMIN D [Concomitant]
     Indication: DRUG USE FOR UNKNOWN INDICATION
     Route: 048
  12. NAMENDA [Concomitant]
     Indication: PREVENTION
     Route: 048
  13. FISH OIL/OMEGA 3 [Concomitant]
     Indication: PREVENTION
     Route: 048

REACTIONS (7)
  - Cough [Recovered/Resolved]
  - Oedema peripheral [Recovered/Resolved]
  - Off label use [None]
  - Pruritus [Recovered/Resolved]
  - Rash [Recovered/Resolved]
  - Chest pain [Recovered/Resolved]
  - Heart rate increased [Recovered/Resolved]
